FAERS Safety Report 4757999-3 (Version None)
Quarter: 2005Q3

REPORT INFORMATION
  Report Type: 
  Country: None (occurrence: None)
  Receive Date: 20050830
  Receipt Date: 20050823
  Transmission Date: 20060218
  Serious: Yes (Hospitalization, Other)
  Sender: FDA-Public Use
  Company Number: 200511446BWH

PATIENT
  Age: 94 Year
  Sex: Female

DRUGS (4)
  1. CIPRO [Suspect]
     Indication: URINARY TRACT INFECTION
     Dates: start: 20050701
  2. NEXIUM [Concomitant]
  3. VITAMINS [Concomitant]
  4. ANXIETY PILL [Concomitant]

REACTIONS (16)
  - ABDOMINAL DISTENSION [None]
  - APHASIA [None]
  - BLOOD ELECTROLYTES ABNORMAL [None]
  - COMMUNICATION DISORDER [None]
  - CONVULSION [None]
  - DEHYDRATION [None]
  - DISORIENTATION [None]
  - DYSPHAGIA [None]
  - DYSPNOEA [None]
  - IMPAIRED SELF-CARE [None]
  - INCONTINENCE [None]
  - INFECTION [None]
  - KIDNEY INFECTION [None]
  - OEDEMA PERIPHERAL [None]
  - SPEECH DISORDER [None]
  - STARING [None]
